FAERS Safety Report 6337439-3 (Version None)
Quarter: 2009Q3

REPORT INFORMATION
  Report Type: 
  Country: None (occurrence: None)
  Receive Date: 20090902
  Receipt Date: 20090825
  Transmission Date: 20100115
  Serious: Yes (Other)
  Sender: FDA-Public Use
  Company Number: US-CELGENEUS-163-21880-08041461

PATIENT
  Sex: Male

DRUGS (3)
  1. REVLIMID [Suspect]
     Dosage: 10MG ALTERNATING WITH 20MG
     Route: 048
     Dates: start: 20070625
  2. REVLIMID [Suspect]
     Route: 048
     Dates: start: 20070201, end: 20070601
  3. ASPIRIN [Concomitant]
     Indication: DRUG USE FOR UNKNOWN INDICATION
     Route: 065

REACTIONS (4)
  - DYSPNOEA [None]
  - NEUROPATHY PERIPHERAL [None]
  - SKIN CANCER [None]
  - SKIN LESION [None]
